FAERS Safety Report 10515555 (Version 1)
Quarter: 2014Q4

REPORT INFORMATION
  Report Type: Spontaneous
  Country: GB (occurrence: None)
  Receive Date: 20141009
  Receipt Date: 20141009
  Transmission Date: 20150528
  Serious: Yes (Other)
  Sender: FDA-Public Use
  Company Number: COR_00094_2014

PATIENT
  Age: 48 Year
  Sex: Female

DRUGS (2)
  1. CARBOPLATIN (CARBOPLATIN) [Suspect]
     Active Substance: CARBOPLATIN
     Indication: OVARIAN ENDOMETRIOID CARCINOMA
     Dosage: 740 MG AUC 6 IN 3 WEELY CYCLES
  2. PACLITAXEL (PACLITAXEL) [Suspect]
     Active Substance: PACLITAXEL
     Indication: OVARIAN ENDOMETRIOID CARCINOMA
     Dosage: TOTAL DOSE 150 MG

REACTIONS (7)
  - Thrombocytopenia [None]
  - Optic atrophy [None]
  - Neutropenia [None]
  - Vision blurred [None]
  - Ocular toxicity [None]
  - Papilloedema [None]
  - Hypersensitivity [None]
